FAERS Safety Report 4679149-4 (Version None)
Quarter: 2005Q2

REPORT INFORMATION
  Report Type: 
  Country: None (occurrence: None)
  Receive Date: 20050527
  Receipt Date: 20050217
  Transmission Date: 20051028
  Serious: Yes (Other)
  Sender: FDA-Public Use
  Company Number: S05-USA-00961-01

PATIENT

DRUGS (1)
  1. CAMPRAL [Suspect]

REACTIONS (1)
  - OEDEMA PERIPHERAL [None]
